FAERS Safety Report 11850454 (Version 1)
Quarter: 2015Q4

REPORT INFORMATION
  Report Type: Spontaneous
  Country: US (occurrence: US)
  Receive Date: 20151218
  Receipt Date: 20151218
  Transmission Date: 20160305
  Serious: No
  Sender: FDA-Public Use
  Company Number: US-JNJFOC-20151126622

PATIENT
  Age: 36 Month
  Sex: Female
  Weight: 13.61 kg

DRUGS (2)
  1. PEPCID COMPLETE [Suspect]
     Active Substance: CALCIUM CARBONATE\FAMOTIDINE\MAGNESIUM HYDROXIDE
     Indication: ACCIDENTAL EXPOSURE TO PRODUCT BY CHILD
     Route: 048
     Dates: start: 20151127, end: 20151127
  2. PEPCID COMPLETE [Suspect]
     Active Substance: CALCIUM CARBONATE\FAMOTIDINE\MAGNESIUM HYDROXIDE
     Route: 048

REACTIONS (1)
  - Accidental exposure to product by child [Unknown]

NARRATIVE: CASE EVENT DATE: 20151127
